FAERS Safety Report 21179496 (Version 3)
Quarter: 2022Q4

REPORT INFORMATION
  Report Type: Spontaneous
  Country: IT (occurrence: IT)
  Receive Date: 20220805
  Receipt Date: 20221209
  Transmission Date: 20230113
  Serious: Yes (Death, Other)
  Sender: FDA-Public Use
  Company Number: IT-NOVARTISPH-NVSC2022IT177012

PATIENT
  Age: 10 Year
  Sex: Female

DRUGS (11)
  1. KYMRIAH [Suspect]
     Active Substance: TISAGENLECLEUCEL
     Indication: Acute lymphocytic leukaemia
     Dosage: UNK
     Route: 042
  2. KYMRIAH [Suspect]
     Active Substance: TISAGENLECLEUCEL
     Dosage: UNK, ONCE/SINGLE ( (INFUSION BAG OF 32 ML TOTAL)
     Route: 042
     Dates: start: 20220802, end: 20220802
  3. SPIRONOLACTONE [Concomitant]
     Active Substance: SPIRONOLACTONE
     Indication: Product used for unknown indication
     Dosage: 25 MG, QD
     Route: 065
  4. CARVEDILOL [Concomitant]
     Active Substance: CARVEDILOL
     Indication: Product used for unknown indication
     Dosage: 12.5 MG + 9.375 MG QD
     Route: 065
  5. RAMIPRIL [Concomitant]
     Active Substance: RAMIPRIL
     Indication: Product used for unknown indication
     Dosage: 1.25 MG, QD
     Route: 065
  6. DEURSIL [Concomitant]
     Active Substance: URSODIOL
     Indication: Product used for unknown indication
     Dosage: 150 MG, BID
     Route: 065
  7. CHOLECALCIFEROL [Concomitant]
     Active Substance: CHOLECALCIFEROL
     Indication: Product used for unknown indication
     Dosage: 4 DRP, QD
     Route: 065
  8. ACYCLOVIR [Concomitant]
     Active Substance: ACYCLOVIR
     Indication: Product used for unknown indication
     Dosage: 285 MG, TID
     Route: 065
  9. ACYCLOVIR [Concomitant]
     Active Substance: ACYCLOVIR
     Dosage: UNK
     Route: 065
     Dates: start: 20220802
  10. PANTOPRAZOLE [Concomitant]
     Active Substance: PANTOPRAZOLE
     Indication: Product used for unknown indication
     Dosage: 30 MG, QD
     Route: 065
  11. FLUCONAZOLE [Concomitant]
     Active Substance: FLUCONAZOLE
     Indication: Product used for unknown indication
     Dosage: 150 MG, QD
     Route: 065

REACTIONS (19)
  - Cytokine release syndrome [Fatal]
  - Anaphylactic reaction [Recovering/Resolving]
  - Bradycardia [Recovering/Resolving]
  - Seizure [Recovering/Resolving]
  - Lip pruritus [Unknown]
  - Oral pruritus [Unknown]
  - Eye pruritus [Unknown]
  - Loss of consciousness [Unknown]
  - Anaphylactic shock [Recovered/Resolved]
  - Cardio-respiratory arrest [Recovered/Resolved]
  - Respiratory distress [Unknown]
  - Tachypnoea [Not Recovered/Not Resolved]
  - Respiratory failure [Unknown]
  - Cardio-respiratory arrest [Unknown]
  - Cancer with a high tumour mutational burden [Unknown]
  - Haemodynamic instability [Unknown]
  - Hypotension [Unknown]
  - Serum ferritin increased [Unknown]
  - Pyrexia [Unknown]
